FAERS Safety Report 6346030-4 (Version None)
Quarter: 2009Q3

REPORT INFORMATION
  Report Type: 
  Country: None (occurrence: None)
  Receive Date: 20090909
  Receipt Date: 20090901
  Transmission Date: 20100115
  Serious: Yes (Death, Life-Threatening, Hospitalization)
  Sender: FDA-Public Use
  Company Number: DE-BRISTOL-MYERS SQUIBB COMPANY-14672406

PATIENT
  Age: 69 Year
  Sex: Male
  Weight: 125 kg

DRUGS (2)
  1. ERBITUX [Suspect]
     Indication: COLON CANCER METASTATIC
     Route: 042
     Dates: start: 20090416
  2. CAMPTOSAR [Suspect]
     Indication: COLON CANCER METASTATIC
     Dosage: 80% OF DOSE USED
     Route: 042
     Dates: start: 20090416

REACTIONS (4)
  - DIARRHOEA [None]
  - FEBRILE NEUTROPENIA [None]
  - GASTROENTERITIS [None]
  - RENAL FAILURE ACUTE [None]
